FAERS Safety Report 7917248-1 (Version None)
Quarter: 2011Q4

REPORT INFORMATION
  Report Type: 
  Country: None (occurrence: None)
  Receive Date: 20111116
  Receipt Date: 20111105
  Transmission Date: 20120403
  Serious: Yes (Other)
  Sender: FDA-Public Use
  Company Number: PHHY2011AR098400

PATIENT
  Age: 58 Year
  Sex: Male

DRUGS (5)
  1. PRAMIPEXOLE DIHYDROCHLORIDE [Suspect]
     Dosage: 8 MG, (SEVERAL DOSES)
  2. ENTACAPONE-LEVODOPA-CARBIDOPA [Suspect]
     Indication: PARKINSON'S DISEASE
     Dates: start: 20061001
  3. AMANTADINE HCL [Suspect]
     Indication: PARKINSON'S DISEASE
     Dosage: 100 MG, TID
  4. PRAMIPEXOLE DIHYDROCHLORIDE [Suspect]
     Dosage: 4.5 MG/DAY
     Dates: start: 20061001
  5. PRAMIPEXOLE DIHYDROCHLORIDE [Suspect]
     Indication: PARKINSON'S DISEASE
     Dosage: 1 MG, TID

REACTIONS (7)
  - PATHOLOGICAL GAMBLING [None]
  - HYPERSEXUALITY [None]
  - HALLUCINATION, VISUAL [None]
  - DOPAMINE DYSREGULATION SYNDROME [None]
  - PARAPHILIA [None]
  - AGGRESSION [None]
  - INSOMNIA [None]
